FAERS Safety Report 15640979 (Version 1)
Quarter: 2018Q4

REPORT INFORMATION
  Report Type: Spontaneous
  Country: JP (occurrence: JP)
  Receive Date: 20181120
  Receipt Date: 20181120
  Transmission Date: 20190205
  Serious: Yes (Death)
  Sender: FDA-Public Use
  Company Number: JP-MALLINCKRODT-T201805066

PATIENT
  Age: 44 Year
  Sex: Male

DRUGS (2)
  1. METHADONE [Suspect]
     Active Substance: METHADONE HYDROCHLORIDE
     Indication: PANCREATIC CARCINOMA
     Dosage: 30 MG
     Route: 048
     Dates: start: 201803, end: 201804
  2. OXINORM (OXYCODONE HYDROCHLORIDE) [Suspect]
     Active Substance: OXYCODONE HYDROCHLORIDE
     Indication: PANCREATIC CARCINOMA
     Dosage: 20 MG
     Route: 048
     Dates: start: 201803, end: 201804

REACTIONS (4)
  - Pancreatic carcinoma [Fatal]
  - Constipation [Unknown]
  - Somnolence [Unknown]
  - Vomiting [Unknown]

NARRATIVE: CASE EVENT DATE: 201803
